FAERS Safety Report 4896758-8 (Version None)
Quarter: 2006Q1

REPORT INFORMATION
  Report Type: 
  Country: None (occurrence: None)
  Receive Date: 20060126
  Receipt Date: 20060111
  Transmission Date: 20060701
  Serious: Yes (Disabling)
  Sender: FDA-Public Use
  Company Number: S06-FRA-00002-01

PATIENT
  Age: 82 Year
  Sex: Male

DRUGS (7)
  1. MEMANTINE HCL [Suspect]
     Indication: PSYCHOTIC DISORDER
     Dosage: 20 MG QD PO
     Route: 048
     Dates: start: 20041001, end: 20051117
  2. FUROSEMIDE [Suspect]
     Indication: ESSENTIAL HYPERTENSION
     Dosage: 20 MG QD PO
     Route: 048
     Dates: start: 20040101, end: 20051117
  3. VALPROIC ACID [Suspect]
     Indication: EPILEPSY
     Dosage: 2 G QD PO
     Route: 048
     Dates: start: 20040101, end: 20051118
  4. DEPAKENE [Concomitant]
     Indication: EPILEPSY
     Dosage: 500 MG BID PO
     Route: 048
  5. APPROVEL [Suspect]
     Indication: ESSENTIAL HYPERTENSION
     Dosage: 75 MG QD PO
     Route: 048
  6. TANAKAN (GINKGO BILOBA EXTRACT) [Suspect]
     Indication: PSYCHOTIC DISORDER
     Dosage: 40 MG PO
     Route: 048
     Dates: end: 20051109
  7. ACETAMINOPHEN [Concomitant]

REACTIONS (16)
  - AKINESIA [None]
  - AMMONIA INCREASED [None]
  - BEDRIDDEN [None]
  - BODY TEMPERATURE INCREASED [None]
  - CEREBRAL ATROPHY [None]
  - CEREBRAL HAEMATOMA [None]
  - COGNITIVE DETERIORATION [None]
  - CONFUSIONAL STATE [None]
  - DIFFICULTY IN WALKING [None]
  - DISORIENTATION [None]
  - ESCHAR [None]
  - EXTRAPYRAMIDAL DISORDER [None]
  - EYELID PTOSIS [None]
  - HYPERTONIA [None]
  - JOINT STIFFNESS [None]
  - WEIGHT DECREASED [None]
